FAERS Safety Report 5633709-2 (Version None)
Quarter: 2008Q1

REPORT INFORMATION
  Report Type: 
  Country: None (occurrence: None)
  Receive Date: 20080131
  Receipt Date: 20071010
  Transmission Date: 20080703
  Serious: No
  Sender: FDA-Public Use
  Company Number: 163-21880-07100661

PATIENT
  Age: 66 Year
  Sex: Male

DRUGS (4)
  1. REVLIMID [Suspect]
     Indication: MULTIPLE MYELOMA
     Dosage: 25 MG, DAILY 21/28, ORAL
     Route: 048
     Dates: start: 20070818
  2. ASPIRIN [Concomitant]
  3. OXYCONTIN [Concomitant]
  4. PERCOCET [Concomitant]

REACTIONS (4)
  - ANOREXIA [None]
  - ASTHENIA [None]
  - DIZZINESS [None]
  - DYSGEUSIA [None]
